FAERS Safety Report 14648299 (Version 1)
Quarter: 2018Q1

REPORT INFORMATION
  Report Type: Spontaneous
  Country: FR (occurrence: FR)
  Receive Date: 20180316
  Receipt Date: 20180316
  Transmission Date: 20180509
  Serious: Yes (Life-Threatening)
  Sender: FDA-Public Use
  Company Number: FR-PFIZER INC-2018107234

PATIENT
  Age: 27 Year
  Sex: Female
  Weight: 65 kg

DRUGS (4)
  1. SUFENTANIL [Suspect]
     Active Substance: SUFENTANIL
     Indication: ANAESTHESIA
     Dosage: 20 UG, UNK
     Route: 042
     Dates: start: 20171013
  2. KETAMINE [Suspect]
     Active Substance: KETAMINE
     Indication: ANAESTHESIA
     Dosage: 20 MG, UNK
     Route: 042
     Dates: start: 20171013
  3. NORADRENALINE /00127501/ [Suspect]
     Active Substance: NOREPINEPHRINE
     Indication: DRUG ADMINISTRATION ERROR
     Dosage: 4 MG, UNK
     Route: 042
     Dates: start: 20171013
  4. PROPOFOL. [Suspect]
     Active Substance: PROPOFOL
     Indication: ANAESTHESIA
     Dosage: 200 MG, UNK
     Route: 042
     Dates: start: 20171013

REACTIONS (2)
  - Drug administration error [Recovered/Resolved]
  - Torsade de pointes [Recovered/Resolved]

NARRATIVE: CASE EVENT DATE: 20171013
